FAERS Safety Report 9773729 (Version 1)
Quarter: 2013Q4

REPORT INFORMATION
  Report Type: Spontaneous
  Country: FR (occurrence: FR)
  Receive Date: 20131219
  Receipt Date: 20131219
  Transmission Date: 20140711
  Serious: Yes (Other)
  Sender: FDA-Public Use
  Company Number: FR-GILEAD-2013-0090211

PATIENT
  Age: 47 Year
  Sex: Female

DRUGS (6)
  1. VISTIDE [Suspect]
     Indication: CYTOMEGALOVIRUS INFECTION
     Dosage: 5 MG/KG, Q1WK
  2. VALACICLOVIR [Concomitant]
     Indication: ANTIVIRAL PROPHYLAXIS
     Dosage: 500 MG, BID
     Dates: start: 2007
  3. VALGANCICLOVIR [Concomitant]
     Indication: PROPHYLAXIS
     Dosage: 50 MG, BID
  4. FOSCARNET [Concomitant]
     Indication: CYTOMEGALOVIRUS INFECTION
     Dosage: 100 MG/KG, QD
  5. FOSCARNET [Concomitant]
     Dosage: 60 MG/KG, TID
  6. GANCICLOVIR [Concomitant]
     Indication: CYTOMEGALOVIRUS INFECTION
     Dosage: 5 MG/KG, BID
     Route: 042

REACTIONS (2)
  - Drug resistance [Unknown]
  - Drug ineffective for unapproved indication [Not Recovered/Not Resolved]
